APPROVED DRUG PRODUCT: CAMCEVI KIT
Active Ingredient: LEUPROLIDE MESYLATE
Strength: EQ 42MG BASE
Dosage Form/Route: EMULSION;SUBCUTANEOUS
Application: N211488 | Product #001
Applicant: ACCORD BIOPHARMA INC
Approved: May 25, 2021 | RLD: Yes | RS: Yes | Type: RX

PATENTS:
Patent 10646572 | Expires: Jan 16, 2027
Patent 11717555 | Expires: Jan 1, 2039
Patent 9744207 | Expires: Jan 16, 2027
Patent 12133878 | Expires: Dec 18, 2037
Patent 9572857 | Expires: Jan 16, 2027